FAERS Safety Report 7699152-X (Version None)
Quarter: 2011Q3

REPORT INFORMATION
  Report Type: 
  Country: None (occurrence: None)
  Receive Date: 20110819
  Receipt Date: 20110815
  Transmission Date: 20111222
  Serious: Yes (Life-Threatening, Hospitalization)
  Sender: FDA-Public Use
  Company Number: GB-ASTRAZENECA-2011SE48584

PATIENT
  Age: 62 Year
  Sex: Male
  Weight: 94 kg

DRUGS (4)
  1. LISINOPRIL [Suspect]
     Route: 048
  2. METRONIDAZOLE [Suspect]
     Indication: TOOTH ABSCESS
  3. SIMVASTATIN [Concomitant]
  4. BENDROFLUAZIDE [Concomitant]

REACTIONS (1)
  - PANCREATITIS ACUTE [None]
